FAERS Safety Report 10095052 (Version 3)
Quarter: 2015Q1

REPORT INFORMATION
  Report Type: Spontaneous
  Country: US (occurrence: US)
  Receive Date: 20140422
  Receipt Date: 20150225
  Transmission Date: 20150720
  Serious: Yes (Other)
  Sender: FDA-Public Use
  Company Number: US-BAYER-2014-054846

PATIENT
  Age: 29 Year
  Sex: Female
  Weight: 56.23 kg

DRUGS (2)
  1. SKYLA [Suspect]
     Active Substance: LEVONORGESTREL
     Indication: CONTRACEPTION
     Dosage: 14 MCG/24HR, CONT
     Route: 015
     Dates: start: 20130822, end: 20140403
  2. SYNTHROID [Concomitant]
     Active Substance: LEVOTHYROXINE SODIUM
     Indication: HYPOTHYROIDISM
     Dosage: UNK, DAILY
     Route: 048

REACTIONS (4)
  - Intra-abdominal haemorrhage [None]
  - Drug ineffective [None]
  - Ectopic pregnancy with contraceptive device [None]
  - Pain [None]
